FAERS Safety Report 13395372 (Version 3)
Quarter: 2017Q2

REPORT INFORMATION
  Report Type: Spontaneous
  Country: US (occurrence: US)
  Receive Date: 20170403
  Receipt Date: 20170529
  Transmission Date: 20170830
  Serious: Yes (Death, Hospitalization)
  Sender: FDA-Public Use
  Company Number: US-PFIZER INC-2017137526

PATIENT
  Age: 64 Year
  Sex: Female

DRUGS (1)
  1. SUTENT [Suspect]
     Active Substance: SUNITINIB MALATE
     Indication: CONNECTIVE TISSUE NEOPLASM
     Dosage: 37.5 MG, 1X/DAY (3 CAPSULES OF 12.5 MG)
     Route: 048

REACTIONS (4)
  - Chest pain [Unknown]
  - Product use in unapproved indication [Unknown]
  - Neoplasm progression [Fatal]
  - Abdominal pain upper [Unknown]
